FAERS Safety Report 8350017-X (Version None)
Quarter: 2012Q2

REPORT INFORMATION
  Report Type: 
  Country: None (occurrence: None)
  Receive Date: 20120510
  Receipt Date: 20120430
  Transmission Date: 20120825
  Serious: Yes (Hospitalization)
  Sender: FDA-Public Use
  Company Number: US-ACTELION-A-US2012-61016

PATIENT

DRUGS (5)
  1. OXYGEN [Concomitant]
  2. ASPIRIN [Concomitant]
  3. CALCIUM CHANNEL BLOCKERS [Concomitant]
  4. REVATIO [Concomitant]
  5. TRACLEER [Suspect]
     Indication: PULMONARY ARTERIAL HYPERTENSION
     Dosage: UNK
     Route: 048
     Dates: start: 20110815

REACTIONS (16)
  - HEAD INJURY [None]
  - ANAEMIA [None]
  - BALANCE DISORDER [None]
  - CONTUSION [None]
  - DECREASED APPETITE [None]
  - DYSPNOEA [None]
  - PNEUMONIA [None]
  - PULMONARY HYPERTENSION [None]
  - PULMONARY OEDEMA [None]
  - DEPRESSION [None]
  - DYSPEPSIA [None]
  - FALL [None]
  - SYNCOPE [None]
  - CHEST PAIN [None]
  - FATIGUE [None]
  - HAEMOPTYSIS [None]
